FAERS Safety Report 9937084 (Version 2)
Quarter: 2014Q3

REPORT INFORMATION
  Report Type: Spontaneous
  Country: FR (occurrence: FR)
  Receive Date: 20140228
  Receipt Date: 20140923
  Transmission Date: 20150326
  Serious: Yes (Hospitalization)
  Sender: FDA-Public Use
  Company Number: FR-ROCHE-1353435

PATIENT
  Age: 62 Year
  Sex: Female

DRUGS (9)
  1. AMLOR [Concomitant]
     Active Substance: AMLODIPINE BESYLATE
     Dosage: 5 MG
     Route: 048
  2. ATENOLOL. [Concomitant]
     Active Substance: ATENOLOL
     Route: 048
  3. PROGRAF [Concomitant]
     Active Substance: TACROLIMUS\TACROLIMUS ANHYDROUS
     Indication: PRODUCT USED FOR UNKNOWN INDICATION
     Route: 048
     Dates: start: 201104
  4. CELLCEPT [Suspect]
     Active Substance: MYCOPHENOLATE MOFETIL\MYCOPHENOLATE MOFETIL HYDROCHLORIDE
     Indication: IMMUNOSUPPRESSION
     Route: 048
     Dates: start: 201104, end: 20131203
  5. TAHOR [Concomitant]
     Active Substance: ATORVASTATIN CALCIUM
     Dosage: 20 MG
     Route: 048
  6. KARDEGIC [Concomitant]
     Active Substance: ASPIRIN LYSINE
     Dosage: 75 MG
     Route: 048
  7. SOLUPRED (FRANCE) [Concomitant]
     Active Substance: PREDNISOLONE
     Dosage: 5 MG
     Route: 048
  8. INEXIUM [Concomitant]
     Active Substance: ESOMEPRAZOLE
     Dosage: 40 MG
     Route: 048
  9. INEXIUM [Concomitant]
     Active Substance: ESOMEPRAZOLE
     Route: 048

REACTIONS (1)
  - Agranulocytosis [Recovered/Resolved]

NARRATIVE: CASE EVENT DATE: 201110
